FAERS Safety Report 14018557 (Version 3)
Quarter: 2017Q4

REPORT INFORMATION
  Report Type: Report from Study
  Country: US (occurrence: US)
  Receive Date: 20170928
  Receipt Date: 20171004
  Transmission Date: 20180321
  Serious: Yes (Hospitalization, Other)
  Sender: FDA-Public Use
  Company Number: US-ROCHE-1997291

PATIENT
  Sex: Male

DRUGS (4)
  1. ESBRIET [Suspect]
     Active Substance: PIRFENIDONE
     Indication: IDIOPATHIC PULMONARY FIBROSIS
     Route: 048
     Dates: start: 20170831
  2. ELIQUIS [Concomitant]
     Active Substance: APIXABAN
  3. PREDNISONE. [Concomitant]
     Active Substance: PREDNISONE
  4. OMEPRAZOLE. [Concomitant]
     Active Substance: OMEPRAZOLE

REACTIONS (5)
  - Delusion [Unknown]
  - Intentional product misuse [Unknown]
  - Hair growth abnormal [Unknown]
  - Paranoia [Unknown]
  - Nail growth abnormal [Unknown]
